FAERS Safety Report 8782623 (Version 1)
Quarter: 2012Q4

REPORT INFORMATION
  Report Type: Report from Study
  Country: US (occurrence: US)
  Receive Date: 20120913
  Receipt Date: 20120913
  Transmission Date: 20130627
  Serious: No
  Sender: FDA-Public Use
  Company Number: US-VERTEX PHARMACEUTICAL INC.-AE-2012-010159

PATIENT
  Age: 63 Year
  Sex: Female

DRUGS (9)
  1. INCIVEK [Suspect]
     Indication: HEPATITIS C
     Route: 048
  2. PEGASYS [Concomitant]
     Indication: HEPATITIS C
  3. RIBAVIRIN [Concomitant]
     Indication: HEPATITIS C
  4. ENALAPRIL [Concomitant]
  5. ESTRADIOL [Concomitant]
  6. CALCIUM 500 [Concomitant]
  7. VITAMIN D CHW [Concomitant]
  8. FOLIC ACID [Concomitant]
  9. B COMPLEX [Concomitant]

REACTIONS (2)
  - Lip swelling [Unknown]
  - Rash pruritic [Unknown]
